FAERS Safety Report 5169647-1 (Version None)
Quarter: 2006Q4

REPORT INFORMATION
  Report Type: 
  Country: None (occurrence: None)
  Receive Date: 20060918
  Receipt Date: 20060721
  Transmission Date: 20070319
  Serious: Yes (Hospitalization)
  Sender: FDA-Public Use
  Company Number: US-JNJFOC-20060200083

PATIENT
  Age: 23 Year
  Sex: Female
  Weight: 68.0396 kg

DRUGS (1)
  1. ORTHO EVRA [Suspect]
     Indication: CONTRACEPTION
     Dosage: 1 DOSE(S), 3 IN 4 WEEK; TRANSDERMAL
     Route: 062
     Dates: start: 20031231, end: 20040101

REACTIONS (2)
  - PNEUMONIA [None]
  - PULMONARY EMBOLISM [None]
